FAERS Safety Report 13014055 (Version 3)
Quarter: 2017Q1

REPORT INFORMATION
  Report Type: Report from Study
  Country: US (occurrence: US)
  Receive Date: 20161209
  Receipt Date: 20170321
  Transmission Date: 20170428
  Serious: Yes (Hospitalization)
  Sender: FDA-Public Use
  Company Number: US-BAYER-2016-225994

PATIENT
  Age: 64 Year
  Sex: Male

DRUGS (4)
  1. STIVARGA [Interacting]
     Active Substance: REGORAFENIB
     Indication: COLORECTAL CANCER
     Dosage: 120 MG DAILY
     Route: 048
     Dates: start: 20170110, end: 201702
  2. DILANTIN [Concomitant]
     Active Substance: PHENYTOIN
  3. STIVARGA [Suspect]
     Active Substance: REGORAFENIB
     Indication: COLORECTAL CANCER
     Dosage: 120 MG DAILY DOSE
     Route: 048
     Dates: start: 20161120, end: 20161130
  4. PHENOBARBITAL. [Interacting]
     Active Substance: PHENOBARBITAL
     Indication: EPILEPSY
     Dosage: UNK
     Dates: start: 201611, end: 201701

REACTIONS (12)
  - Exercise tolerance decreased [None]
  - Seizure [None]
  - Adverse event [None]
  - Urinary tract infection [None]
  - Asthenia [Not Recovered/Not Resolved]
  - Somnolence [None]
  - Labelled drug-drug interaction medication error [None]
  - Dysphonia [None]
  - Muscular weakness [None]
  - Memory impairment [None]
  - Fatigue [None]
  - Loss of consciousness [None]

NARRATIVE: CASE EVENT DATE: 2016
